FAERS Safety Report 7315183-3 (Version None)
Quarter: 2011Q1

REPORT INFORMATION
  Report Type: 
  Country: None (occurrence: None)
  Receive Date: 20110217
  Receipt Date: 20110217
  Transmission Date: 20110831
  Serious: Yes (Other)
  Sender: FDA-Public Use
  Company Number: None

PATIENT
  Age: 62 Year
  Sex: Female

DRUGS (1)
  1. PROGESTERONE [Suspect]
     Indication: PROGESTERONE
     Dosage: 25 G 1 X DAY GEL
     Dates: start: 20090901

REACTIONS (2)
  - APPLICATION SITE BURN [None]
  - PRODUCT ODOUR ABNORMAL [None]
